FAERS Safety Report 6388413-2 (Version None)
Quarter: 2009Q4

REPORT INFORMATION
  Report Type: 
  Country: None (occurrence: None)
  Receive Date: 20091005
  Receipt Date: 20090928
  Transmission Date: 20100525
  Serious: Yes (Other)
  Sender: FDA-Public Use
  Company Number: TN-BRISTOL-MYERS SQUIBB COMPANY-14568356

PATIENT
  Age: 39 Year
  Sex: Male

DRUGS (3)
  1. AMOXICILLIN [Suspect]
     Indication: GASTRIC ULCER
     Dosage: TAKEN 1000MG INITIALLY AND THEN 500MG LATER
     Dates: start: 20070411
  2. CLARITHROMYCIN [Suspect]
     Indication: GASTRIC ULCER
     Dates: start: 20070411
  3. OMEPRAZOLE [Suspect]
     Indication: GASTRIC ULCER
     Dates: start: 20070411

REACTIONS (1)
  - PHOTOSENSITIVITY REACTION [None]
